FAERS Safety Report 7118747-5 (Version None)
Quarter: 2010Q4

REPORT INFORMATION
  Report Type: 
  Country: None (occurrence: None)
  Receive Date: 20101027
  Receipt Date: 20100827
  Transmission Date: 20110411
  Serious: Yes (Other)
  Sender: FDA-Public Use
  Company Number: US-WYE-H17268910

PATIENT
  Age: 57 Year
  Sex: Female
  Weight: 54.48 kg

DRUGS (4)
  1. PREMARIN [Suspect]
     Indication: MUSCLE DISORDER
     Dosage: TOPICAL
     Route: 061
     Dates: start: 20090801
  2. MULTI-VITAMINS [Concomitant]
  3. MINERALS NOS (MINERALS NOS) [Concomitant]
  4. ALAVERT [Concomitant]

REACTIONS (2)
  - EXPIRED DRUG ADMINISTERED [None]
  - VAGINAL HAEMORRHAGE [None]
